FAERS Safety Report 15313985 (Version 1)
Quarter: 2018Q3

REPORT INFORMATION
  Report Type: Spontaneous
  Country: FR (occurrence: FR)
  Receive Date: 20180824
  Receipt Date: 20180824
  Transmission Date: 20181010
  Serious: Yes (Life-Threatening, Hospitalization, Other)
  Sender: FDA-Public Use
  Company Number: FR-AUROBINDO-AUR-APL-2018-042684

PATIENT
  Age: 80 Year
  Sex: Female
  Weight: 48 kg

DRUGS (2)
  1. PREVISCAN                          /00261401/ [Concomitant]
     Active Substance: PENTOXIFYLLINE
     Indication: PRODUCT USED FOR UNKNOWN INDICATION
     Dosage: UNK
     Route: 048
  2. ATENOLOL. [Suspect]
     Active Substance: ATENOLOL
     Indication: ATRIAL FIBRILLATION
     Dosage: 250 MILLIGRAM, TOTAL
     Route: 048
     Dates: start: 20180518, end: 20180518

REACTIONS (4)
  - Bradycardia [Recovered/Resolved]
  - Loss of consciousness [Recovered/Resolved]
  - Fall [Recovered/Resolved]
  - Hypotension [Recovered/Resolved]

NARRATIVE: CASE EVENT DATE: 20180519
